FAERS Safety Report 6919223-2 (Version None)
Quarter: 2010Q3

REPORT INFORMATION
  Report Type: 
  Country: None (occurrence: None)
  Receive Date: 20100810
  Receipt Date: 20100810
  Transmission Date: 20110219
  Serious: No
  Sender: FDA-Public Use
  Company Number: None

PATIENT
  Age: 52 Year
  Sex: Male
  Weight: 94 kg

DRUGS (1)
  1. TUBERCULIN NOS [Suspect]
     Indication: PROPHYLAXIS
     Dosage: .1 ML ONCE OTHER
     Route: 050
     Dates: start: 20100414, end: 20100414

REACTIONS (1)
  - RASH [None]
